FAERS Safety Report 10412699 (Version 1)
Quarter: 2014Q3

REPORT INFORMATION
  Report Type: Spontaneous
  Country: DE (occurrence: DE)
  Receive Date: 20140827
  Receipt Date: 20140827
  Transmission Date: 20150326
  Serious: Yes (Other)
  Sender: FDA-Public Use
  Company Number: DE-GILEAD-2014-0113051

PATIENT
  Age: 79 Year
  Sex: Female

DRUGS (8)
  1. RANOLAZINE [Suspect]
     Active Substance: RANOLAZINE
     Indication: OFF LABEL USE
  2. KEPPRA [Concomitant]
     Active Substance: LEVETIRACETAM
     Dosage: 250 MG, QD
  3. RANOLAZINE [Suspect]
     Active Substance: RANOLAZINE
     Indication: CARDIOMYOPATHY
     Dosage: 375 MG, BID
     Route: 048
     Dates: start: 20140629, end: 20140719
  4. PRAVASTATIN [Concomitant]
     Active Substance: PRAVASTATIN\PRAVASTATIN SODIUM
     Indication: HYPERCHOLESTEROLAEMIA
  5. PLAVIX [Concomitant]
     Active Substance: CLOPIDOGREL BISULFATE
     Indication: PROPHYLAXIS
     Dosage: 75 MG, QD
  6. ALDACTONE [Suspect]
     Active Substance: SPIRONOLACTONE
     Indication: DIURETIC THERAPY
     Dosage: 25 MG, QD
     Route: 065
     Dates: start: 20140629, end: 20140719
  7. NEXIUM [Concomitant]
     Active Substance: ESOMEPRAZOLE MAGNESIUM
     Dosage: 40 MG, QD
  8. METAMIZOLE [Concomitant]
     Active Substance: METAMIZOLE
     Indication: PAIN
     Dosage: 1500 MG, TID

REACTIONS (7)
  - Off label use [Recovered/Resolved]
  - Balance disorder [Recovered/Resolved]
  - Vision blurred [Recovering/Resolving]
  - Psychotic disorder [Recovered/Resolved]
  - Myalgia [Recovering/Resolving]
  - Headache [Recovered/Resolved]
  - Suicidal ideation [Unknown]

NARRATIVE: CASE EVENT DATE: 20140629
